FAERS Safety Report 4830274-4 (Version None)
Quarter: 2005Q4

REPORT INFORMATION
  Report Type: 
  Country: None (occurrence: None)
  Receive Date: 20051117
  Receipt Date: 20050811
  Transmission Date: 20060501
  Serious: Yes (Hospitalization)
  Sender: FDA-Public Use
  Company Number: US-MERCK-0508USA02386

PATIENT
  Age: 73 Year
  Sex: Female
  Weight: 91 kg

DRUGS (15)
  1. VIOXX [Suspect]
     Indication: OSTEOARTHRITIS
     Route: 048
     Dates: start: 20040311
  2. VIOXX [Suspect]
     Route: 048
     Dates: start: 20010226, end: 20040310
  3. VIOXX [Suspect]
     Route: 048
     Dates: start: 20010219, end: 20010225
  4. VIOXX [Suspect]
     Route: 048
     Dates: end: 20040901
  5. MAVIK [Suspect]
     Indication: HYPERTENSION
     Route: 048
     Dates: start: 19900101, end: 20021001
  6. MAVIK [Suspect]
     Indication: MYOCARDIAL INFARCTION
     Route: 048
     Dates: start: 19900101, end: 20021001
  7. TOPROL-XL [Concomitant]
     Indication: HYPERTENSION
     Route: 048
     Dates: start: 19860101
  8. ASPIRIN [Concomitant]
     Indication: PROPHYLAXIS
     Route: 048
     Dates: start: 19940101
  9. ESTRADIOL [Concomitant]
     Indication: HORMONE REPLACEMENT THERAPY
     Route: 048
     Dates: end: 20010101
  10. AVANDIA [Concomitant]
     Indication: DIABETES MELLITUS
     Route: 048
  11. PRILOSEC [Concomitant]
     Indication: DYSPEPSIA
     Route: 048
  12. INSULIN HUMAN, ISOPHANE [Concomitant]
     Indication: DIABETES MELLITUS
     Route: 058
  13. INSULIN HUMAN [Concomitant]
     Indication: DIABETES MELLITUS
     Route: 058
  14. LIPITOR [Concomitant]
     Route: 048
  15. GLUCOPHAGE [Suspect]
     Route: 048

REACTIONS (16)
  - ANGINA UNSTABLE [None]
  - BLOOD CHOLESTEROL INCREASED [None]
  - BRAIN STEM INFARCTION [None]
  - CARDIAC DISORDER [None]
  - CEREBROVASCULAR ACCIDENT [None]
  - DIARRHOEA [None]
  - DIZZINESS [None]
  - HYPERLIPIDAEMIA [None]
  - JOINT SWELLING [None]
  - MONARTHRITIS [None]
  - MOVEMENT DISORDER [None]
  - SENSATION OF FOREIGN BODY [None]
  - STOMACH DISCOMFORT [None]
  - VERTEBRAL ARTERY STENOSIS [None]
  - VERTIGO [None]
  - VIRAL INFECTION [None]
